FAERS Safety Report 7950557-9 (Version None)
Quarter: 2011Q4

REPORT INFORMATION
  Report Type: 
  Country: None (occurrence: None)
  Receive Date: 20111130
  Receipt Date: 20111117
  Transmission Date: 20120403
  Serious: Yes (Other)
  Sender: FDA-Public Use
  Company Number: US-ROCHE-1014596

PATIENT
  Sex: Female
  Weight: 61.29 kg

DRUGS (2)
  1. IBUPROFEN (ADVIL) [Suspect]
     Indication: MUSCLE SPASMS
     Dates: start: 20111026, end: 20111027
  2. VALIUM [Suspect]
     Indication: GALLBLADDER DISORDER
     Dates: start: 20111026

REACTIONS (3)
  - DRUG INEFFECTIVE [None]
  - GALLBLADDER DISORDER [None]
  - PAIN [None]
